FAERS Safety Report 7777342-5 (Version None)
Quarter: 2011Q3

REPORT INFORMATION
  Report Type: 
  Country: None (occurrence: None)
  Receive Date: 20110926
  Receipt Date: 20110922
  Transmission Date: 20111222
  Serious: Yes (Life-Threatening, Hospitalization, Other)
  Sender: FDA-Public Use
  Company Number: PHFR2011IE03185

PATIENT
  Sex: Female

DRUGS (4)
  1. CLOZAPINE [Suspect]
     Dosage: 300 MG/DAY
     Route: 048
     Dates: start: 20000101, end: 20110513
  2. ALPRAZOLAM [Concomitant]
     Route: 065
  3. CLOZAPINE [Suspect]
     Indication: SCHIZOPHRENIA
     Route: 048
     Dates: start: 19990412
  4. AMISULPRIDE [Suspect]
     Dosage: 200 MG/DAY
     Route: 048
     Dates: start: 20060101, end: 20110101

REACTIONS (3)
  - BLOOD CREATINE PHOSPHOKINASE INCREASED [None]
  - CATATONIA [None]
  - NEUROLEPTIC MALIGNANT SYNDROME [None]
